FAERS Safety Report 8307724-4 (Version None)
Quarter: 2012Q2

REPORT INFORMATION
  Report Type: 
  Country: None (occurrence: None)
  Receive Date: 20120424
  Receipt Date: 20120418
  Transmission Date: 20120825
  Serious: Yes (Other)
  Sender: FDA-Public Use
  Company Number: PHHY2012KR032889

PATIENT
  Sex: Female

DRUGS (1)
  1. AFINITOR [Suspect]
     Dosage: 10 MG, QD
     Route: 048
     Dates: start: 20110811, end: 20120111

REACTIONS (4)
  - MENORRHAGIA [None]
  - VAGINAL HAEMORRHAGE [None]
  - ADENOMYOSIS [None]
  - HAEMOGLOBIN DECREASED [None]
